FAERS Safety Report 13541415 (Version 2)
Quarter: 2018Q3

REPORT INFORMATION
  Report Type: Spontaneous
  Country: US (occurrence: US)
  Receive Date: 20170512
  Receipt Date: 20180808
  Transmission Date: 20181010
  Serious: Yes (Hospitalization)
  Sender: FDA-Public Use
  Company Number: US-JNJFOC-20170509895

PATIENT
  Age: 47 Year
  Sex: Male

DRUGS (2)
  1. INVOKANA [Suspect]
     Active Substance: CANAGLIFLOZIN
     Indication: TYPE 2 DIABETES MELLITUS
     Route: 048
     Dates: start: 20151030
  2. METFORMIN [Suspect]
     Active Substance: METFORMIN HYDROCHLORIDE
     Indication: PRODUCT USED FOR UNKNOWN INDICATION
     Route: 048
     Dates: end: 201511

REACTIONS (4)
  - Hyperkalaemia [Recovering/Resolving]
  - Hyperglycaemia [Recovering/Resolving]
  - Acute kidney injury [Recovering/Resolving]
  - Ketoacidosis [Unknown]

NARRATIVE: CASE EVENT DATE: 20151115
